FAERS Safety Report 16768106 (Version 3)
Quarter: 2019Q4

REPORT INFORMATION
  Report Type: Spontaneous
  Country: AR (occurrence: AR)
  Receive Date: 20190903
  Receipt Date: 20191220
  Transmission Date: 20200122
  Serious: Yes (Death, Hospitalization, Other)
  Sender: FDA-Public Use
  Company Number: AR-GILEAD-2019-0416598

PATIENT
  Sex: Female

DRUGS (1)
  1. AMBRISENTAN [Suspect]
     Active Substance: AMBRISENTAN
     Indication: PULMONARY HYPERTENSION
     Dosage: UNK
     Route: 065

REACTIONS (10)
  - Cardiac disorder [Unknown]
  - Pulmonary hypertension [Unknown]
  - Hypersensitivity [Unknown]
  - Fatigue [Unknown]
  - Cough [Unknown]
  - Cardiac assistance device user [Unknown]
  - Renal disorder [Unknown]
  - Sneezing [Unknown]
  - Death [Fatal]
  - Gait disturbance [Unknown]

NARRATIVE: CASE EVENT DATE: 201911
